FAERS Safety Report 19144704 (Version 1)
Quarter: 2021Q2

REPORT INFORMATION
  Report Type: Spontaneous
  Country: US (occurrence: US)
  Receive Date: 20210415
  Receipt Date: 20210415
  Transmission Date: 20210717
  Serious: No
  Sender: FDA-Public Use
  Company Number: None

PATIENT
  Sex: Male

DRUGS (1)
  1. STELARA [Suspect]
     Active Substance: USTEKINUMAB
     Indication: CROHN^S DISEASE
     Dosage: OTHER FREQUENCY:EVERY 8 WEEKS ;?
     Route: 058
     Dates: start: 201908

REACTIONS (4)
  - Condition aggravated [None]
  - Drug ineffective [None]
  - Abdominal discomfort [None]
  - Pain [None]
